FAERS Safety Report 22517480 (Version 1)
Quarter: 2023Q2

REPORT INFORMATION
  Report Type: Spontaneous
  Country: US (occurrence: US)
  Receive Date: 20230603
  Receipt Date: 20230603
  Transmission Date: 20230722
  Serious: No
  Sender: FDA-Public Use
  Company Number: US-PHARMAESSENTIA CORPORATION-US-2023-PEC-001261

PATIENT

DRUGS (7)
  1. BESREMI [Suspect]
     Active Substance: ROPEGINTERFERON ALFA-2B-NJFT
     Indication: Polycythaemia vera
     Dosage: 150 MCG, Q2W
     Route: 058
     Dates: start: 20230228
  2. BESREMI [Suspect]
     Active Substance: ROPEGINTERFERON ALFA-2B-NJFT
     Dosage: 100 MCG
     Route: 058
  3. ATORVASTATIN [Concomitant]
     Active Substance: ATORVASTATIN
     Indication: Product used for unknown indication
     Route: 065
  4. CLOTRIMAZOLE [Concomitant]
     Active Substance: CLOTRIMAZOLE
     Indication: Product used for unknown indication
     Route: 065
  5. JAKAFI [Concomitant]
     Active Substance: RUXOLITINIB
     Indication: Product used for unknown indication
     Route: 065
  6. NORTRIPTYLINE [Concomitant]
     Active Substance: NORTRIPTYLINE
     Indication: Product used for unknown indication
     Route: 065
  7. VIMPAT [Concomitant]
     Active Substance: LACOSAMIDE
     Indication: Product used for unknown indication
     Route: 065

REACTIONS (3)
  - Abnormal loss of weight [Not Recovered/Not Resolved]
  - Pruritus [Recovered/Resolved]
  - Headache [Not Recovered/Not Resolved]
